FAERS Safety Report 9462002 (Version 2)
Quarter: 2013Q3

REPORT INFORMATION
  Report Type: Spontaneous
  Country: US (occurrence: US)
  Receive Date: 20130816
  Receipt Date: 20130826
  Transmission Date: 20140515
  Serious: Yes (Other)
  Sender: FDA-Public Use
  Company Number: US-BAYER-2013-098927

PATIENT
  Sex: Male
  Weight: 75.28 kg

DRUGS (3)
  1. BAYER ASPIRIN REGIMEN ADULT LOW STRENGTH [Suspect]
     Indication: ISCHAEMIC HEART DISEASE PROPHYLAXIS
     Dosage: 1 DF, QD
     Route: 048
     Dates: start: 1998, end: 1999
  2. LORTAB [Concomitant]
  3. PLAVIX [Concomitant]

REACTIONS (3)
  - Haemorrhage [Recovered/Resolved]
  - Asthenia [Recovered/Resolved]
  - Blood count abnormal [Recovered/Resolved]
